FAERS Safety Report 12632215 (Version 2)
Quarter: 2016Q3

REPORT INFORMATION
  Report Type: Spontaneous
  Country: US (occurrence: US)
  Receive Date: 20160808
  Receipt Date: 20160808
  Transmission Date: 20161109
  Serious: No
  Sender: FDA-Public Use
  Company Number: US-BEH-2016062172

PATIENT
  Sex: Female
  Weight: 54 kg

DRUGS (23)
  1. EPIPEN [Concomitant]
     Active Substance: EPINEPHRINE
  2. DETROL [Concomitant]
     Active Substance: TOLTERODINE TARTRATE
  3. NAPROXEN. [Concomitant]
     Active Substance: NAPROXEN
  4. PREVACID [Concomitant]
     Active Substance: LANSOPRAZOLE
  5. HIZENTRA [Suspect]
     Active Substance: HUMAN IMMUNOGLOBULIN G
     Indication: IMMUNODEFICIENCY COMMON VARIABLE
     Route: 058
     Dates: start: 20140115
  6. XANAX [Concomitant]
     Active Substance: ALPRAZOLAM
  7. CARTIA XT [Concomitant]
     Active Substance: DILTIAZEM HYDROCHLORIDE
  8. FLORASTOR [Concomitant]
     Active Substance: SACCHAROMYCES CEREVISIAE
  9. AZELASTINE [Concomitant]
     Active Substance: AZELASTINE
  10. NEILMED [Concomitant]
  11. ESTRACE [Concomitant]
     Active Substance: ESTRADIOL
  12. LMX [Concomitant]
     Active Substance: LIDOCAINE
  13. ACYCLOVIR. [Concomitant]
     Active Substance: ACYCLOVIR
  14. TOPROL XL [Concomitant]
     Active Substance: METOPROLOL SUCCINATE
  15. LEVOTHYROXINE. [Concomitant]
     Active Substance: LEVOTHYROXINE
  16. VITAMIN B COMPLEX [Concomitant]
     Active Substance: CYANOCOBALAMIN\DEXPANTHENOL\NIACINAMIDE\PYRIDOXINE HYDROCHLORIDE\RIBOFLAVIN 5^-PHOSPHATE SODIUM\THIAMINE HYDROCHLORIDE\VITAMIN B COMPLEX
  17. CITRACAL [Concomitant]
     Active Substance: CALCIUM CITRATE
  18. QVAR [Concomitant]
     Active Substance: BECLOMETHASONE DIPROPIONATE
  19. VITAMIN D [Concomitant]
     Active Substance: CHOLECALCIFEROL
  20. DIPHENHYDRAMINE. [Concomitant]
     Active Substance: DIPHENHYDRAMINE
  21. BEANO [Concomitant]
     Active Substance: ASPERGILLUS NIGER .ALPHA.-GALACTOSIDASE
  22. ACETAMINOPHEN. [Concomitant]
     Active Substance: ACETAMINOPHEN
  23. ALIGN [Concomitant]
     Active Substance: BIFIDOBACTERIUM LONGUM SUBSP. INFANTIS

REACTIONS (1)
  - Malaise [Unknown]
